FAERS Safety Report 15562506 (Version 1)
Quarter: 2018Q4

REPORT INFORMATION
  Report Type: Spontaneous
  Country: US (occurrence: US)
  Receive Date: 20181029
  Receipt Date: 20181029
  Transmission Date: 20190205
  Serious: No
  Sender: FDA-Public Use
  Company Number: US-PFIZER INC-2018430771

PATIENT
  Age: 73 Year
  Sex: Male

DRUGS (5)
  1. LYRICA [Suspect]
     Active Substance: PREGABALIN
     Dosage: 2 DF, 1X/DAY, [2 PILLS PER DAY]
  2. ASPIRIN BAYER [Concomitant]
     Active Substance: ASPIRIN
     Indication: PAIN
     Dosage: 325 MG, UNK, [325MG, TAKES 2-4 PER DAY]
  3. LYRICA [Suspect]
     Active Substance: PREGABALIN
     Dosage: 100 MG, 4X/DAY
     Route: 048
  4. LYRICA [Suspect]
     Active Substance: PREGABALIN
     Indication: PAIN
     Dosage: 100 MG, 1X/DAY
  5. TRAMADOL. [Concomitant]
     Active Substance: TRAMADOL
     Indication: PAIN
     Dosage: 100 MG, AS NEEDED [100 MG CAPSULE, TAKE UP TO FOUR CAPSULES A DAY AS NEEDED]

REACTIONS (6)
  - Tension [Unknown]
  - Drug effect incomplete [Unknown]
  - Feeling abnormal [Unknown]
  - Pruritus [Unknown]
  - Product use issue [Unknown]
  - Intentional product use issue [Unknown]
